FAERS Safety Report 7814818-6 (Version None)
Quarter: 2011Q4

REPORT INFORMATION
  Report Type: 
  Country: None (occurrence: None)
  Receive Date: 20111014
  Receipt Date: 20110930
  Transmission Date: 20120403
  Serious: Yes (Hospitalization)
  Sender: FDA-Public Use
  Company Number: GB-ROCHE-799870

PATIENT
  Sex: Female
  Weight: 53 kg

DRUGS (4)
  1. ASACOL [Concomitant]
  2. MABTHERA [Suspect]
     Indication: PRODUCT USED FOR UNKNOWN INDICATION
     Route: 042
  3. PREDNISOLONE [Concomitant]
     Route: 048
     Dates: start: 20110908, end: 20110908
  4. URSODIOL [Concomitant]

REACTIONS (2)
  - MALAISE [None]
  - CONVULSION [None]
